FAERS Safety Report 17633288 (Version 3)
Quarter: 2020Q3

REPORT INFORMATION
  Report Type: Spontaneous
  Country: US (occurrence: US)
  Receive Date: 20200406
  Receipt Date: 20200929
  Transmission Date: 20201102
  Serious: Yes (Other)
  Sender: FDA-Public Use
  Company Number: US-GILEAD-2020-0457043

PATIENT
  Age: 57 Year
  Sex: Male
  Weight: 64.4 kg

DRUGS (31)
  1. DESCOVY [Concomitant]
     Active Substance: EMTRICITABINE\TENOFOVIR ALAFENAMIDE FUMARATE
  2. HARVONI [Concomitant]
     Active Substance: LEDIPASVIR\SOFOSBUVIR
  3. VALACYCLOVIR [Concomitant]
     Active Substance: VALACYCLOVIR HYDROCHLORIDE
  4. NEVIRAPINE. [Concomitant]
     Active Substance: NEVIRAPINE
  5. MONTELUKAST [Concomitant]
     Active Substance: MONTELUKAST SODIUM
  6. AMOXICILLIN. [Concomitant]
     Active Substance: AMOXICILLIN
  7. FLUVIRIN [INFLUENZA VACCINE INACT SAG 3V] [Concomitant]
  8. ACETAMINOPHEN. [Concomitant]
     Active Substance: ACETAMINOPHEN
  9. VIREAD [Suspect]
     Active Substance: TENOFOVIR DISOPROXIL FUMARATE
     Indication: HIV INFECTION
     Dosage: UNK
     Route: 065
     Dates: start: 2001, end: 20100303
  10. OLOPATADINE. [Concomitant]
     Active Substance: OLOPATADINE
  11. BENZONATATE. [Concomitant]
     Active Substance: BENZONATATE
  12. AZELASTINE. [Concomitant]
     Active Substance: AZELASTINE HYDROCHLORIDE
  13. SULFAMETHIZOLE;TRIMETHOPRIM [Concomitant]
     Active Substance: SULFAMETHIZOLE\TRIMETHOPRIM
  14. ATORVASTATIN [Concomitant]
     Active Substance: ATORVASTATIN
  15. DICLOFENAC [Concomitant]
     Active Substance: DICLOFENAC
  16. ALENDRONATE [Concomitant]
     Active Substance: ALENDRONATE SODIUM
  17. IBUPROFEN. [Concomitant]
     Active Substance: IBUPROFEN
  18. PENICILLIN [PENICILLIN NOS] [Concomitant]
     Active Substance: PENICILLIN
  19. COMPLERA [Concomitant]
     Active Substance: EMTRICITABINE\RILPIVIRINE HYDROCHLORIDE\TENOFOVIR DISOPROXIL FUMARATE
     Indication: HIV INFECTION
     Dosage: UNK, TOOK FOR ONE WEEK
     Route: 048
     Dates: start: 201001, end: 201001
  20. ROSUVASTATIN. [Concomitant]
     Active Substance: ROSUVASTATIN
  21. ASPIRIN [ACETYLSALICYLIC ACID] [Concomitant]
     Active Substance: ASPIRIN
  22. LEVOFLOXACIN. [Concomitant]
     Active Substance: LEVOFLOXACIN
  23. CYCLOBENZAPRINE. [Concomitant]
     Active Substance: CYCLOBENZAPRINE
  24. TRUVADA [Suspect]
     Active Substance: EMTRICITABINE\TENOFOVIR DISOPROXIL FUMARATE
     Indication: HIV INFECTION
     Dosage: UNK
     Route: 065
     Dates: start: 2010, end: 20190303
  25. OXYCODONE [Concomitant]
     Active Substance: OXYCODONE
  26. BACTRIM [Concomitant]
     Active Substance: SULFAMETHOXAZOLE\TRIMETHOPRIM
  27. NAPROXEN. [Concomitant]
     Active Substance: NAPROXEN
  28. ATRIPLA [Concomitant]
     Active Substance: EFAVIRENZ\EMTRICITABINE\TENOFOVIR DISOPROXIL FUMARATE
     Indication: HIV INFECTION
     Dosage: UNK, TOOK ONE DOSE
     Dates: start: 2010, end: 2010
  29. CEPHALEXIN [CEFALEXIN] [Concomitant]
     Active Substance: CEPHALEXIN
  30. TESTOSTERONE. [Concomitant]
     Active Substance: TESTOSTERONE
  31. PREDNISONE. [Concomitant]
     Active Substance: PREDNISONE

REACTIONS (6)
  - Osteopenia [Recovered/Resolved]
  - Osteoporosis [Not Recovered/Not Resolved]
  - Rib fracture [Unknown]
  - Ankle fracture [Unknown]
  - Loss of personal independence in daily activities [Not Recovered/Not Resolved]
  - Bone density decreased [Unknown]

NARRATIVE: CASE EVENT DATE: 201404
